FAERS Safety Report 7681492 (Version 9)
Quarter: 2013Q1

REPORT INFORMATION
  Report Type: Report from Study
  Country: JP (occurrence: JP)
  Receive Date: 20101124
  Receipt Date: 20130313
  Transmission Date: 20140127
  Serious: Yes (Hospitalization, Other)
  Sender: FDA-Public Use
  Company Number: JP-CELGENEUS-087-21880-10111556

PATIENT
  Age: 73 Year
  Sex: Female
  Weight: 39 kg

DRUGS (40)
  1. REVLIMID [Suspect]
     Indication: PLASMA CELL MYELOMA
     Dosage: 15 MILLIGRAM
     Route: 048
     Dates: start: 20100910, end: 20100930
  2. REVLIMID [Suspect]
     Dosage: 15 MILLIGRAM
     Route: 048
     Dates: start: 20101020, end: 20101030
  3. REVLIMID [Suspect]
     Dosage: 10 MILLIGRAM
     Route: 048
     Dates: start: 20101117, end: 20110104
  4. REVLIMID [Suspect]
     Dosage: 10 MILLIGRAM
     Route: 048
     Dates: start: 20110115, end: 20110324
  5. REVLIMID [Suspect]
     Dosage: 10 MILLIGRAM
     Route: 048
     Dates: start: 20110409, end: 20110429
  6. REVLIMID [Suspect]
     Dosage: 5 MILLIGRAM
     Route: 048
     Dates: start: 20110507, end: 20110527
  7. REVLIMID [Suspect]
     Dosage: 10 MILLIGRAM
     Route: 048
     Dates: start: 20110604, end: 20110624
  8. REVLIMID [Suspect]
     Dosage: 10 MILLIGRAM
     Route: 048
     Dates: start: 20110702, end: 20110722
  9. REVLIMID [Suspect]
     Dosage: 5 MILLIGRAM
     Route: 048
     Dates: start: 20110730, end: 20110819
  10. REVLIMID [Suspect]
     Dosage: 10 MILLIGRAM
     Route: 048
     Dates: start: 20110827, end: 20110916
  11. REVLIMID [Suspect]
     Dosage: 5 MILLIGRAM
     Route: 048
     Dates: start: 20111007, end: 20111027
  12. REVLIMID [Suspect]
     Dosage: 5 MILLIGRAM
     Route: 048
     Dates: start: 20111104, end: 20111124
  13. REVLIMID [Suspect]
     Dosage: 5 MILLIGRAM
     Route: 048
     Dates: start: 20111202, end: 20111222
  14. REVLIMID [Suspect]
     Dosage: 5 MILLIGRAM
     Route: 048
     Dates: start: 20120106, end: 20120126
  15. LENADEX [Suspect]
     Indication: PLASMA CELL MYELOMA
     Dosage: 40 MILLIGRAM
     Route: 048
     Dates: start: 20100926, end: 20100929
  16. LENADEX [Suspect]
     Dosage: 40 MILLIGRAM
     Route: 048
     Dates: start: 20101020, end: 20101023
  17. LENADEX [Suspect]
     Dosage: 20 MILLIGRAM
     Route: 048
     Dates: start: 20101117, end: 20101229
  18. LENADEX [Suspect]
     Dosage: 20 MILLIGRAM
     Route: 048
     Dates: start: 20110115, end: 20110402
  19. LENADEX [Suspect]
     Dosage: 20 MILLIGRAM
     Route: 048
     Dates: start: 20110409, end: 20110916
  20. LENADEX [Suspect]
     Dosage: 20 MILLIGRAM
     Route: 048
     Dates: start: 20111007, end: 20120126
  21. WARFARIN [Suspect]
     Indication: PROPHYLAXIS
     Dosage: 2 MILLIGRAM
     Route: 048
     Dates: start: 20100913, end: 20100916
  22. WARFARIN [Suspect]
     Dosage: 2.5 MILLIGRAM
     Route: 048
     Dates: start: 20100917, end: 20100920
  23. WARFARIN [Suspect]
     Dosage: 2 MILLIGRAM
     Route: 048
     Dates: start: 20100921, end: 20101004
  24. DEXART [Concomitant]
     Indication: PLASMA CELL MYELOMA
     Dosage: 33 MILLIGRAM
     Route: 041
     Dates: start: 20100910, end: 20100913
  25. DEXART [Concomitant]
     Dosage: 33 MILLIGRAM
     Route: 041
     Dates: start: 20100918, end: 20100921
  26. TAKEPRON [Concomitant]
     Indication: PROPHYLAXIS
     Dosage: 15 MILLIGRAM
     Route: 048
     Dates: start: 20100910, end: 20101003
  27. TAKEPRON [Concomitant]
     Dosage: 30 MILLIGRAM
     Route: 048
     Dates: start: 20101020, end: 20120126
  28. BAKTAR [Concomitant]
     Indication: PROPHYLAXIS
     Dosage: .2 GRAM
     Route: 048
     Dates: start: 20100910, end: 20120126
  29. ALOSENN [Concomitant]
     Indication: CONSTIPATION
     Dosage: .5 GRAM
     Route: 048
     Dates: start: 20100910, end: 20120126
  30. HEPARIN SODIUM [Concomitant]
     Indication: PROPHYLAXIS
     Dosage: 10000 IU (INTERNATIONAL UNIT)
     Route: 041
     Dates: start: 20100910, end: 20100916
  31. ARTIST [Concomitant]
     Indication: ANGINA PECTORIS
     Dosage: 5 MILLIGRAM
     Route: 048
     Dates: start: 20100910, end: 20120126
  32. BUFFERIN [Concomitant]
     Indication: ANGINA PECTORIS
     Dosage: 81 MILLIGRAM
     Route: 048
     Dates: start: 20100910, end: 20110228
  33. BUFFERIN [Concomitant]
     Dosage: 81 MILLIGRAM
     Route: 048
     Dates: start: 20110409
  34. BUFFERIN [Concomitant]
     Dosage: 81 MILLIGRAM
     Route: 048
     Dates: start: 20111007, end: 20120126
  35. SIGMART [Concomitant]
     Indication: ANGINA PECTORIS
     Dosage: 10 MILLIGRAM
     Route: 048
     Dates: start: 20100910, end: 20120126
  36. CONIEL [Concomitant]
     Indication: HYPERTENSION
     Dosage: 4 MILLIGRAM
     Route: 048
     Dates: start: 20100910
  37. CONIEL [Concomitant]
     Dosage: 8 MILLIGRAM
     Route: 048
     Dates: start: 20110115, end: 20120126
  38. BAYASPIRIN [Concomitant]
     Indication: ANGINA PECTORIS
     Dosage: 100 MILLIGRAM
     Route: 048
     Dates: start: 20110115, end: 20120126
  39. NESP [Concomitant]
     Indication: PLASMA CELL MYELOMA
     Dosage: 30 MICROGRAM
     Route: 058
     Dates: start: 20110128, end: 20110408
  40. NESP [Concomitant]
     Dosage: 30 MICROGRAM
     Route: 058
     Dates: start: 20110409

REACTIONS (10)
  - Prothrombin time prolonged [Recovered/Resolved]
  - Platelet count decreased [Recovered/Resolved]
  - Upper gastrointestinal haemorrhage [Recovered/Resolved]
  - Pneumonia [Recovering/Resolving]
  - Platelet count decreased [Recovered/Resolved]
  - Platelet count decreased [Recovering/Resolving]
  - Thrombocytopenia [Recovering/Resolving]
  - Neutropenia [Recovering/Resolving]
  - Upper respiratory tract inflammation [Recovered/Resolved]
  - Cough [Recovered/Resolved]
